FAERS Safety Report 4593357-2 (Version None)
Quarter: 2005Q1

REPORT INFORMATION
  Report Type: 
  Country: None (occurrence: None)
  Receive Date: 20050224
  Receipt Date: 20040506
  Transmission Date: 20050727
  Serious: No
  Sender: FDA-Public Use
  Company Number: US-BRISTOL-MYERS SQUIBB COMPANY-12580692

PATIENT
  Age: 61 Year
  Sex: Female
  Weight: 42 kg

DRUGS (8)
  1. EXCEDRIN (MIGRAINE) [Suspect]
     Indication: MIGRAINE
     Route: 048
     Dates: start: 20040504, end: 20040504
  2. PROTONIX [Concomitant]
  3. LANOXIN [Concomitant]
  4. PLAVIX [Concomitant]
  5. LESCOL [Concomitant]
  6. ASPIRIN [Concomitant]
  7. PENTOXIFYLLINE [Concomitant]
  8. ESTROPIPATE [Concomitant]

REACTIONS (2)
  - DRUG INEFFECTIVE [None]
  - NAUSEA [None]
